FAERS Safety Report 15989180 (Version 2)
Quarter: 2019Q1

REPORT INFORMATION
  Report Type: Report from Study
  Country: ES (occurrence: ES)
  Receive Date: 20190221
  Receipt Date: 20190330
  Transmission Date: 20190418
  Serious: Yes (Disabling)
  Sender: FDA-Public Use
  Company Number: ES-ROCHE-2263592

PATIENT
  Sex: Female
  Weight: 61 kg

DRUGS (1)
  1. ESBRIET [Suspect]
     Active Substance: PIRFENIDONE
     Indication: IDIOPATHIC PULMONARY FIBROSIS
     Route: 048
     Dates: start: 201712, end: 201812

REACTIONS (1)
  - Hepatic function abnormal [Recovered/Resolved with Sequelae]
